FAERS Safety Report 23695176 (Version 1)
Quarter: 2024Q2

REPORT INFORMATION
  Report Type: Spontaneous
  Country: IT (occurrence: IT)
  Receive Date: 20240402
  Receipt Date: 20240402
  Transmission Date: 20240716
  Serious: Yes (Other)
  Sender: FDA-Public Use
  Company Number: None

PATIENT
  Age: 51 Year
  Sex: Male
  Weight: 106 kg

DRUGS (2)
  1. CISPLATIN [Suspect]
     Active Substance: CISPLATIN
     Indication: Bladder cancer
     Dosage: START OF THERAPY 22/12/2023 - THERAPY ON DAY 1, EVERY 21 DAY - I CYCLE
     Dates: start: 20231222, end: 20231222
  2. GEMCITABINE [Suspect]
     Active Substance: GEMCITABINE
     Indication: Bladder cancer
     Dosage: START OF THERAPY 22/12/2023 - THERAPY ON DAY 1 AND 8 EVERY 21 DAYS
     Dates: start: 20231222, end: 20231229

REACTIONS (3)
  - Hyperglycaemia [Recovering/Resolving]
  - Thrombocytopenia [Recovering/Resolving]
  - Leukopenia [Recovering/Resolving]

NARRATIVE: CASE EVENT DATE: 20231229
